FAERS Safety Report 7079610-1 (Version None)
Quarter: 2010Q4

REPORT INFORMATION
  Report Type: 
  Country: None (occurrence: None)
  Receive Date: 20101102
  Receipt Date: 20101019
  Transmission Date: 20110411
  Serious: Yes (Other)
  Sender: FDA-Public Use
  Company Number: PHHY2010US64830

PATIENT
  Sex: Female

DRUGS (13)
  1. RECLAST [Suspect]
     Dosage: UNK
     Dates: start: 20100419
  2. CONTRACEPTIVES NOS [Suspect]
  3. PLAVIX [Concomitant]
  4. ZINC [Concomitant]
  5. ASCORBIC ACID [Concomitant]
  6. SANTYL [Concomitant]
     Route: 061
  7. TRAVATAN [Concomitant]
  8. METOPROLOL [Concomitant]
  9. ACETAMINOPHEN [Concomitant]
  10. CALCIUM [Concomitant]
  11. DOCUSATE [Concomitant]
  12. OYST-CAL [Concomitant]
  13. ANTIBIOTICS [Concomitant]

REACTIONS (7)
  - BONE PAIN [None]
  - LOCALISED INFECTION [None]
  - MYALGIA [None]
  - OEDEMA PERIPHERAL [None]
  - PAIN IN EXTREMITY [None]
  - SURGERY [None]
  - WOUND [None]
